FAERS Safety Report 18692116 (Version 2)
Quarter: 2021Q1

REPORT INFORMATION
  Report Type: Report from Study
  Country: EG (occurrence: EG)
  Receive Date: 20210102
  Receipt Date: 20210108
  Transmission Date: 20210419
  Serious: Yes (Other)
  Sender: FDA-Public Use
  Company Number: NVSC2020EG344429

PATIENT
  Age: 13 Year
  Sex: Male
  Weight: 47 kg

DRUGS (5)
  1. COMTREX [Concomitant]
     Indication: NASOPHARYNGITIS
     Dosage: 1 DF, QD
     Route: 065
  2. VITACID C [Concomitant]
     Indication: NASOPHARYNGITIS
     Dosage: 1 DF, QD,(STARTED FROM 1 WEEK)
     Route: 065
  3. VENTOCOUGH [Concomitant]
     Indication: NASOPHARYNGITIS
     Dosage: UNK UNK, QD (STARTED FROM 1 WEEK)
     Route: 065
  4. OMNITROPE [Suspect]
     Active Substance: SOMATROPIN
     Indication: GROWTH HORMONE DEFICIENCY
     Dosage: 1.2 MG, QD
     Route: 058
     Dates: start: 20201220
  5. DECAL B12 [Concomitant]
     Indication: PRODUCT USED FOR UNKNOWN INDICATION
     Dosage: UNK UNK, QD (STARTED FROM 2 WEEKS,1TBSP/DAY)
     Route: 065

REACTIONS (3)
  - Injection site extravasation [Not Recovered/Not Resolved]
  - Device leakage [Not Recovered/Not Resolved]
  - Injection site bruising [Not Recovered/Not Resolved]

NARRATIVE: CASE EVENT DATE: 20201220
